FAERS Safety Report 17363346 (Version 3)
Quarter: 2020Q1

REPORT INFORMATION
  Report Type: Spontaneous
  Country: US (occurrence: US)
  Receive Date: 20200203
  Receipt Date: 20200227
  Transmission Date: 20200409
  Serious: Yes (Disabling)
  Sender: FDA-Public Use
  Company Number: US-ACTELION-A-NJ2020-200803

PATIENT
  Age: 1 Year
  Sex: Male

DRUGS (4)
  1. TRACLEER [Suspect]
     Active Substance: BOSENTAN
     Indication: PULMONARY ARTERIAL HYPERTENSION
     Dosage: 16 MG, BID
     Route: 048
     Dates: start: 20190927
  2. SILDENAFIL. [Concomitant]
     Active Substance: SILDENAFIL
     Dosage: 14 MG, TID
     Dates: start: 20190606
  3. LASIX [Concomitant]
     Active Substance: FUROSEMIDE
     Dosage: 7 MG, QD
     Dates: start: 20180828
  4. DIGOXIN. [Concomitant]
     Active Substance: DIGOXIN
     Dosage: 30 MCG, BID
     Dates: start: 20180823

REACTIONS (2)
  - Upper gastrointestinal haemorrhage [Not Recovered/Not Resolved]
  - Haematemesis [Not Recovered/Not Resolved]

NARRATIVE: CASE EVENT DATE: 20191001
